FAERS Safety Report 15709871 (Version 1)
Quarter: 2018Q4

REPORT INFORMATION
  Report Type: Spontaneous
  Country: BE (occurrence: BE)
  Receive Date: 20181211
  Receipt Date: 20181211
  Transmission Date: 20190205
  Serious: Yes (Hospitalization)
  Sender: FDA-Public Use
  Company Number: BE-HQ SPECIALTY-BE-2018INT000246

PATIENT

DRUGS (3)
  1. DOXORUBICIN [Suspect]
     Active Substance: DOXORUBICIN
     Indication: PERITONEAL MESOTHELIOMA MALIGNANT RECURRENT
     Dosage: 15 MG/M2, UNK
     Route: 065
  2. PEMETREXED. [Concomitant]
     Active Substance: PEMETREXED
     Indication: PRODUCT USED FOR UNKNOWN INDICATION
     Dosage: UNK
  3. CISPLATIN. [Suspect]
     Active Substance: CISPLATIN
     Indication: PERITONEAL MESOTHELIOMA MALIGNANT RECURRENT
     Dosage: 50 MG/M2, UNK
     Route: 065

REACTIONS (1)
  - Acute respiratory distress syndrome [Recovering/Resolving]
